FAERS Safety Report 9033539 (Version 1)
Quarter: 2013Q1

REPORT INFORMATION
  Report Type: Spontaneous
  Country: US (occurrence: US)
  Receive Date: 20130128
  Receipt Date: 20130128
  Transmission Date: 20140127
  Serious: Yes (Death, Other)
  Sender: FDA-Public Use
  Company Number: PHHY2013US007180

PATIENT
  Age: 53 Year
  Sex: Female

DRUGS (3)
  1. METOPROLOL [Suspect]
  2. TRAZODONE [Suspect]
  3. DIPHENHYDRAMINE [Suspect]

REACTIONS (2)
  - Drug abuse [Fatal]
  - Drug level increased [Unknown]
